FAERS Safety Report 8576030-5 (Version None)
Quarter: 2012Q3

REPORT INFORMATION
  Report Type: 
  Country: None (occurrence: None)
  Receive Date: 20120725
  Receipt Date: 20120716
  Transmission Date: 20120928
  Serious: Yes (Other)
  Sender: FDA-Public Use
  Company Number: 2010003316

PATIENT
  Age: 69 Year
  Sex: Female

DRUGS (1)
  1. TARCEVA (ERLOTINIB HYDROCHLORIDE) TABLET [Suspect]
     Indication: LUNG NEOPLASM MALIGNANT
     Dosage: 150 MG, UID/QD, ORAL
     Route: 048
     Dates: start: 20090909

REACTIONS (2)
  - LUNG DISORDER [None]
  - RASH [None]
